FAERS Safety Report 7529689-5 (Version None)
Quarter: 2011Q2

REPORT INFORMATION
  Report Type: 
  Country: None (occurrence: None)
  Receive Date: 20110607
  Receipt Date: 20110520
  Transmission Date: 20111010
  Serious: Yes (Hospitalization, Congenital Anomaly)
  Sender: FDA-Public Use
  Company Number: A0930294A

PATIENT
  Sex: Female

DRUGS (2)
  1. PAXIL [Suspect]
     Route: 064
     Dates: start: 20020131, end: 20030904
  2. PAROXETINE HCL [Suspect]
     Route: 064
     Dates: start: 20030804, end: 20050101

REACTIONS (3)
  - FALLOT'S TETRALOGY [None]
  - ATRIAL SEPTAL DEFECT [None]
  - DRUG EXPOSURE DURING PREGNANCY [None]
